FAERS Safety Report 4806698-8 (Version None)
Quarter: 2005Q4

REPORT INFORMATION
  Report Type: 
  Country: None (occurrence: None)
  Receive Date: 20051019
  Receipt Date: 20051003
  Transmission Date: 20060501
  Serious: Yes (Death)
  Sender: FDA-Public Use
  Company Number: EWC050945995

PATIENT
  Age: 73 Year
  Sex: Female

DRUGS (1)
  1. FORTEO [Suspect]
     Indication: OSTEOPOROSIS
     Dates: start: 20050503, end: 20050530

REACTIONS (4)
  - ACUTE MYELOID LEUKAEMIA [None]
  - ECCHYMOSIS [None]
  - NAUSEA [None]
  - VOMITING [None]
